FAERS Safety Report 7706744-8 (Version None)
Quarter: 2011Q3

REPORT INFORMATION
  Report Type: 
  Country: None (occurrence: None)
  Receive Date: 20110824
  Receipt Date: 20110816
  Transmission Date: 20111222
  Serious: Yes (Other)
  Sender: FDA-Public Use
  Company Number: MY-ROCHE-788812

PATIENT
  Sex: Female
  Weight: 50.5 kg

DRUGS (2)
  1. MIRCERA [Suspect]
     Indication: ANAEMIA
     Route: 065
     Dates: start: 20110401
  2. RECORMON [Suspect]
     Dosage: DOSE: 5000 IU
     Route: 065

REACTIONS (2)
  - HAEMOGLOBIN DECREASED [None]
  - ILL-DEFINED DISORDER [None]
